FAERS Safety Report 8067976-5 (Version None)
Quarter: 2012Q1

REPORT INFORMATION
  Report Type: 
  Country: None (occurrence: None)
  Receive Date: 20120124
  Receipt Date: 20110901
  Transmission Date: 20120608
  Serious: No
  Sender: FDA-Public Use
  Company Number: US-AMGEN-USASP2011044997

PATIENT
  Age: 72 Year
  Sex: Female

DRUGS (9)
  1. FLUTICASONE                        /00972202/ [Concomitant]
     Dosage: UNK
  2. CARVEDILOL [Concomitant]
     Dosage: UNK
  3. FLOVENT [Concomitant]
  4. CALCIUM [Concomitant]
  5. PROLIA [Suspect]
     Indication: OSTEOPOROSIS POSTMENOPAUSAL
     Dosage: 60 MG, Q6MO
     Dates: start: 20110404
  6. ATROVENT [Concomitant]
  7. VITAMIN D                          /00318501/ [Concomitant]
     Indication: OSTEOPOROSIS POSTMENOPAUSAL
     Dosage: 2 IU, UNK
  8. ALBUTEROL [Concomitant]
  9. AMLODIPINE [Concomitant]
     Dosage: 1 MG, UNK

REACTIONS (7)
  - NAIL BED BLEEDING [None]
  - SKIN EXFOLIATION [None]
  - NAIL INJURY [None]
  - PAIN IN EXTREMITY [None]
  - RASH [None]
  - THYROID DISORDER [None]
  - MUSCLE SPASMS [None]
